FAERS Safety Report 19217678 (Version 1)
Quarter: 2021Q2

REPORT INFORMATION
  Report Type: Spontaneous
  Country: DE (occurrence: DE)
  Receive Date: 20210505
  Receipt Date: 20210505
  Transmission Date: 20210717
  Serious: Yes (Death, Hospitalization)
  Sender: FDA-Public Use
  Company Number: DE-NOVOPROD-807947

PATIENT
  Sex: Male

DRUGS (7)
  1. OXYCODON NALOXON MEPHA [Concomitant]
     Dosage: 20 MG /  10 MG 1TBL
     Route: 065
  2. PANTOPRAZOLE [Concomitant]
     Active Substance: PANTOPRAZOLE
     Dosage: 40 MG
     Route: 065
  3. OXYCODONE HYDROCHLORIDE. [Concomitant]
     Active Substance: OXYCODONE HYDROCHLORIDE
     Dosage: 3 MG / 3 ML
     Route: 042
  4. MACROGOL [Concomitant]
     Active Substance: POLYETHYLENE GLYCOLS
     Dosage: 1 SACHET
     Route: 065
  5. HUMAN INSULIN [Suspect]
     Active Substance: INSULIN HUMAN
     Indication: PRODUCT USED FOR UNKNOWN INDICATION
     Dosage: UNK
     Route: 065
  6. HEPARIN [Concomitant]
     Active Substance: HEPARIN SODIUM
     Dosage: 25000I.E. IN 50 ML I.V. 1 ML/H 500I.U./H
     Route: 042
  7. METAMIZOLE [Concomitant]
     Active Substance: METAMIZOLE
     Dosage: 5 G IN 50 ML I.V. 2.1 ML H 0.21G/H
     Route: 042

REACTIONS (3)
  - Hypokalaemia [Fatal]
  - Shock hypoglycaemic [Fatal]
  - Intentional product misuse [Fatal]
